FAERS Safety Report 10091794 (Version 2)
Quarter: 2014Q2

REPORT INFORMATION
  Report Type: Spontaneous
  Country: US (occurrence: US)
  Receive Date: 20140421
  Receipt Date: 20140421
  Transmission Date: 20141212
  Serious: No
  Sender: FDA-Public Use
  Company Number: US-GILEAD-2012-0056776

PATIENT
  Sex: Female
  Weight: 85.4 kg

DRUGS (5)
  1. LETAIRIS [Suspect]
     Indication: PULMONARY HYPERTENSION
     Dosage: 5 MG, UNK
     Route: 048
     Dates: start: 20120321
  2. ACIPHEX [Concomitant]
  3. MYCOPHENOLATE [Concomitant]
  4. PREDNISONE [Concomitant]
  5. TACROLIMUS [Concomitant]

REACTIONS (1)
  - Migraine [Recovered/Resolved]
